FAERS Safety Report 7712854-1 (Version None)
Quarter: 2011Q3

REPORT INFORMATION
  Report Type: 
  Country: None (occurrence: None)
  Receive Date: 20110826
  Receipt Date: 20110817
  Transmission Date: 20111222
  Serious: Yes (Hospitalization, Other)
  Sender: FDA-Public Use
  Company Number: PHHY2011IE68293

PATIENT
  Sex: Female

DRUGS (8)
  1. NU-SEALS ASPIRIN [Concomitant]
     Dosage: 75 MG, UNK
  2. EXELON [Suspect]
     Dosage: 4.6 MG, DAILY
     Route: 062
  3. CALCICHEW [Concomitant]
     Dosage: 500 MG, 1BD
  4. MOLIPAXIN [Concomitant]
     Dosage: 100 MG, NOCTE
     Route: 048
  5. LIPITOR [Concomitant]
     Dosage: 20 MG, NOCTE
     Route: 048
  6. ACETYLSALICYLIC ACID [Concomitant]
     Dosage: UNK UKN, UNK
  7. DONA [Concomitant]
     Dosage: 1500 MG, UNK
     Route: 048
  8. COZAAR COMP [Concomitant]
     Dosage: 1 DF, UNK
     Route: 048

REACTIONS (15)
  - RASH GENERALISED [None]
  - WHITE BLOOD CELL COUNT INCREASED [None]
  - PYREXIA [None]
  - ASTHENIA [None]
  - NAUSEA [None]
  - C-REACTIVE PROTEIN INCREASED [None]
  - BLOOD ALBUMIN DECREASED [None]
  - RASH [None]
  - DIARRHOEA [None]
  - LIVER FUNCTION TEST ABNORMAL [None]
  - OEDEMA PERIPHERAL [None]
  - EOSINOPHILIA [None]
  - DRUG RASH WITH EOSINOPHILIA AND SYSTEMIC SYMPTOMS [None]
  - ERYTHEMA MULTIFORME [None]
  - HERPES VIRUS INFECTION [None]
